FAERS Safety Report 10227913 (Version 1)
Quarter: 2014Q2

REPORT INFORMATION
  Report Type: Spontaneous
  Country: US (occurrence: US)
  Receive Date: 20140610
  Receipt Date: 20140610
  Transmission Date: 20141212
  Serious: Yes (Hospitalization)
  Sender: FDA-Public Use
  Company Number: US-GILEAD-2014-0104544

PATIENT
  Sex: Female

DRUGS (1)
  1. LETAIRIS [Suspect]
     Indication: PRODUCT USED FOR UNKNOWN INDICATION
     Dosage: 10 MG, QD
     Route: 065
     Dates: start: 20070901

REACTIONS (7)
  - Pulmonary mass [Recovered/Resolved]
  - Lung disorder [Recovered/Resolved]
  - Epistaxis [Unknown]
  - Lymphadenopathy [Unknown]
  - Headache [Unknown]
  - Vomiting [Unknown]
  - Rash [Unknown]
